FAERS Safety Report 7149210-3 (Version None)
Quarter: 2010Q4

REPORT INFORMATION
  Report Type: 
  Country: None (occurrence: None)
  Receive Date: 20101209
  Receipt Date: 20101129
  Transmission Date: 20110411
  Serious: Yes (Death)
  Sender: FDA-Public Use
  Company Number: NL-WATSON-2010-15613

PATIENT
  Age: 77 Year
  Sex: Male

DRUGS (1)
  1. RIVASTIGIME TARTRATE [Suspect]
     Indication: DELIRIUM
     Dosage: 2.25 ML, UNK

REACTIONS (1)
  - PNEUMONIA [None]
